FAERS Safety Report 22375185 (Version 1)
Quarter: 2023Q2

REPORT INFORMATION
  Report Type: Spontaneous
  Country: GB (occurrence: GB)
  Receive Date: 20230527
  Receipt Date: 20230527
  Transmission Date: 20230721
  Serious: Yes (Hospitalization)
  Sender: FDA-Public Use
  Company Number: None

PATIENT
  Age: 72 Year
  Sex: Female
  Weight: 78 kg

DRUGS (10)
  1. RISPERIDONE [Suspect]
     Active Substance: RISPERIDONE
     Indication: Ill-defined disorder
     Dosage: UNK
     Route: 065
     Dates: start: 20230519
  2. ARIPIPRAZOLE [Concomitant]
     Active Substance: ARIPIPRAZOLE
     Indication: Ill-defined disorder
     Dosage: 2.5 MG, QD, TAKE HALF (2.5MG)
     Route: 065
     Dates: start: 20221128, end: 20230309
  3. FYBOGEL [Concomitant]
     Active Substance: HERBALS\PLANTAGO OVATA SEED
     Indication: Ill-defined disorder
     Dosage: UNK, PRN, (ONCE OR TWICE WHEN REQUIRED))
     Route: 065
     Dates: start: 20220623
  4. IBUPROFEN [Concomitant]
     Active Substance: IBUPROFEN
     Indication: Ill-defined disorder
     Dosage: UNK, TID, APPLY 3 TIMES/DAY WHEN REQUIRED
     Route: 065
     Dates: start: 20230213
  5. LANSOPRAZOLE [Concomitant]
     Active Substance: LANSOPRAZOLE
     Indication: Ill-defined disorder
     Dosage: 1 DOSAGE FORM, QD
     Route: 065
     Dates: start: 20230309
  6. NITROFURANTOIN [Concomitant]
     Active Substance: NITROFURANTOIN
     Indication: Ill-defined disorder
     Dosage: UNK, QDS, APPLY AT NIGHT - EVERY NIGHT FOR 4 WEEKS THEN
     Route: 065
     Dates: start: 20230425, end: 20230502
  7. ESTRIOL [Concomitant]
     Active Substance: ESTRIOL
     Indication: Ill-defined disorder
     Dosage: UNK, APPLY AT NIGHT - EVERY NIGHT FOR 4 WEEKS THEN
     Route: 065
     Dates: start: 20230504
  8. PAROXETINE [Concomitant]
     Active Substance: PAROXETINE
     Indication: Ill-defined disorder
     Dosage: 3 DOSAGE FORM, QD
     Route: 065
     Dates: start: 20221202
  9. QUETIAPINE [Concomitant]
     Active Substance: QUETIAPINE
     Indication: Ill-defined disorder
     Dosage: 1 DOSAGE FORM, QD, ONE AT NIGHT
     Route: 065
     Dates: start: 20230425, end: 20230519
  10. RISPERIDONE [Concomitant]
     Active Substance: RISPERIDONE
     Indication: Ill-defined disorder
     Dosage: UNK, HALF A TABLET AT NIGHT INCREASING TO ONE TABLET
     Route: 065
     Dates: start: 20230309, end: 20230425

REACTIONS (3)
  - Panic attack [Recovered/Resolved]
  - Agitation [Recovering/Resolving]
  - Anxiety [Recovering/Resolving]

NARRATIVE: CASE EVENT DATE: 20230519
